FAERS Safety Report 15351861 (Version 3)
Quarter: 2019Q2

REPORT INFORMATION
  Report Type: Spontaneous
  Country: US (occurrence: US)
  Receive Date: 20180905
  Receipt Date: 20190429
  Transmission Date: 20190711
  Serious: Yes (Hospitalization, Other)
  Sender: FDA-Public Use
  Company Number: US-PFIZER INC-2017157475

PATIENT
  Age: 4 Decade
  Sex: Female

DRUGS (3)
  1. PREMARIN [Suspect]
     Active Substance: ESTROGENS, CONJUGATED
     Indication: OESTROGEN DEFICIENCY
     Dosage: 0.625 MG, 1X/DAY (1 TABLET 1 TIME A DAY)
  2. PREMARIN [Suspect]
     Active Substance: ESTROGENS, CONJUGATED
     Dosage: UNK
     Dates: start: 1986
  3. PREMARIN [Suspect]
     Active Substance: ESTROGENS, CONJUGATED
     Indication: HORMONE LEVEL ABNORMAL
     Dosage: UNK, 1X/DAY (.625 UNIT UNSPECIFIED)

REACTIONS (2)
  - Vaginal laceration [Not Recovered/Not Resolved]
  - Vaginal disorder [Not Recovered/Not Resolved]

NARRATIVE: CASE EVENT DATE: 1990
